FAERS Safety Report 19431893 (Version 1)
Quarter: 2021Q2

REPORT INFORMATION
  Report Type: Spontaneous
  Country: US (occurrence: US)
  Receive Date: 20210618
  Receipt Date: 20210618
  Transmission Date: 20210717
  Serious: No
  Sender: FDA-Public Use
  Company Number: US-ELI_LILLY_AND_COMPANY-US202106006009

PATIENT
  Sex: Female

DRUGS (1)
  1. TRULICITY [Suspect]
     Active Substance: DULAGLUTIDE
     Indication: POLYCYSTIC OVARIES
     Dosage: 1.5 MG, UNKNOWN
     Route: 058

REACTIONS (2)
  - Injection site vesicles [Recovered/Resolved]
  - Off label use [Unknown]
